FAERS Safety Report 10616401 (Version 1)
Quarter: 2014Q4

REPORT INFORMATION
  Report Type: Spontaneous
  Country: US (occurrence: US)
  Receive Date: 20141201
  Receipt Date: 20141201
  Transmission Date: 20150529
  Serious: Yes (Hospitalization)
  Sender: FDA-Public Use
  Company Number: US-BAYER-2014-174657

PATIENT
  Age: 45 Year
  Sex: Female
  Weight: 117.91 kg

DRUGS (5)
  1. YAZ [Suspect]
     Active Substance: DROSPIRENONE\ETHINYL ESTRADIOL
  2. PRINIVIL [Concomitant]
     Active Substance: LISINOPRIL
  3. MIRALAX [Concomitant]
     Active Substance: POLYETHYLENE GLYCOL 3350
  4. YASMIN [Suspect]
     Active Substance: DROSPIRENONE\ETHINYL ESTRADIOL
  5. OCELLA [Suspect]
     Active Substance: DROSPIRENONE\ETHINYL ESTRADIOL

REACTIONS (2)
  - Pulmonary embolism [None]
  - Deep vein thrombosis [None]

NARRATIVE: CASE EVENT DATE: 20100615
